FAERS Safety Report 8797075 (Version 1)
Quarter: 2012Q4

REPORT INFORMATION
  Report Type: 
  Country: BE (occurrence: BE)
  Receive Date: 20120919
  Receipt Date: 20120919
  Transmission Date: 20130627
  Serious: Yes (Disabling)
  Sender: FDA-Public Use
  Company Number: BE-GLAXOSMITHKLINE-B0824825A

PATIENT
  Age: 56 Year
  Sex: Female

DRUGS (4)
  1. BOOSTRIX [Suspect]
     Indication: PRODUCT USED FOR UNKNOWN INDICATION
     Dosage: 1INJ Single dose
     Route: 065
     Dates: start: 20111222, end: 20111222
  2. MALARONE [Suspect]
     Indication: MALARIA PROPHYLAXIS
     Route: 065
     Dates: start: 20120123, end: 20120222
  3. STAMARIL [Concomitant]
     Indication: PROPHYLAXIS
     Dates: start: 20111222, end: 20111222
  4. IMOVAX POLIO [Concomitant]
     Indication: POLIO IMMUNISATION
     Dates: start: 20111222, end: 20111222

REACTIONS (3)
  - Interstitial granulomatous dermatitis [Not Recovered/Not Resolved]
  - Rash [Not Recovered/Not Resolved]
  - Drug eruption [Not Recovered/Not Resolved]
